FAERS Safety Report 22322413 (Version 1)
Quarter: 2023Q2

REPORT INFORMATION
  Report Type: Report from Study
  Country: CN (occurrence: CN)
  Receive Date: 20230516
  Receipt Date: 20230516
  Transmission Date: 20230721
  Serious: Yes (Other)
  Sender: FDA-Public Use
  Company Number: CN-AUROBINDO-AUR-APL-2023-035730

PATIENT
  Age: 45 Year
  Sex: Male

DRUGS (6)
  1. MELPHALAN [Suspect]
     Active Substance: MELPHALAN
     Indication: Central nervous system lymphoma
     Dosage: 140 MILLIGRAM/SQ. METER
     Route: 048
  2. CARMUSTINE [Suspect]
     Active Substance: CARMUSTINE
     Indication: Central nervous system lymphoma
     Dosage: 300 MILLIGRAM/SQ. METER
     Route: 042
  3. CYTARABINE [Suspect]
     Active Substance: CYTARABINE
     Indication: Central nervous system lymphoma
     Dosage: 300 MILLIGRAM/SQ. METER
     Route: 042
  4. ETOPOSIDE [Suspect]
     Active Substance: ETOPOSIDE
     Indication: Central nervous system lymphoma
     Dosage: 200 MILLIGRAM/SQ. METER
     Route: 042
  5. ACYCLOVIR [Concomitant]
     Active Substance: ACYCLOVIR
     Indication: Prophylaxis
     Dosage: UNK
     Route: 065
  6. FILGRASTIM [Concomitant]
     Active Substance: FILGRASTIM
     Indication: Product used for unknown indication
     Dosage: UNK
     Route: 065

REACTIONS (3)
  - Epilepsy [Unknown]
  - Haematotoxicity [Unknown]
  - Gastrointestinal toxicity [Unknown]
